FAERS Safety Report 21620386 (Version 1)
Quarter: 2022Q4

REPORT INFORMATION
  Report Type: Spontaneous
  Country: IR (occurrence: IR)
  Receive Date: 20221121
  Receipt Date: 20221121
  Transmission Date: 20230112
  Serious: Yes (Other)
  Sender: FDA-Public Use
  Company Number: None

PATIENT
  Age: 53 Year
  Sex: Female

DRUGS (1)
  1. CILOSTAZOL [Suspect]
     Active Substance: CILOSTAZOL
     Indication: Diabetic foot
     Route: 065

REACTIONS (1)
  - Tubulointerstitial nephritis [Unknown]
